FAERS Safety Report 5085075-1 (Version None)
Quarter: 2006Q3

REPORT INFORMATION
  Report Type: 
  Country: None (occurrence: None)
  Receive Date: 20060822
  Receipt Date: 20060809
  Transmission Date: 20061208
  Serious: Yes (Hospitalization, Other)
  Sender: FDA-Public Use
  Company Number: PHHO2006MX13147

PATIENT
  Age: 69 Year
  Sex: Female

DRUGS (3)
  1. TEGRETOL [Suspect]
     Indication: NECK PAIN
     Dosage: 200 MG, BID
     Route: 048
     Dates: start: 20060726, end: 20060726
  2. DICLOFENAC [Concomitant]
  3. VITAMIN B COMPLEX CAP [Concomitant]

REACTIONS (4)
  - ANOREXIA [None]
  - DEPRESSION [None]
  - DRUG TOXICITY [None]
  - OEDEMA [None]
